FAERS Safety Report 8431979-9 (Version None)
Quarter: 2012Q2

REPORT INFORMATION
  Report Type: 
  Country: None (occurrence: None)
  Receive Date: 20120613
  Receipt Date: 20110822
  Transmission Date: 20120825
  Serious: No
  Sender: FDA-Public Use
  Company Number: US-ASTRAZENECA-2011SE12261

PATIENT
  Age: 50 Year
  Sex: Female
  Weight: 49.9 kg

DRUGS (3)
  1. RHINOCORT [Suspect]
     Indication: MULTIPLE ALLERGIES
     Dosage: 2 SPRAYS
     Route: 045
  2. ATROVAN NASAL SPRAY [Concomitant]
  3. SINGULAIR [Concomitant]

REACTIONS (7)
  - EAR DISCOMFORT [None]
  - NASAL CONGESTION [None]
  - MALAISE [None]
  - DIZZINESS [None]
  - CHEST DISCOMFORT [None]
  - MULTIPLE ALLERGIES [None]
  - DRUG DOSE OMISSION [None]
